FAERS Safety Report 7007779-3 (Version None)
Quarter: 2010Q3

REPORT INFORMATION
  Report Type: 
  Country: None (occurrence: None)
  Receive Date: 20100922
  Receipt Date: 20100914
  Transmission Date: 20110219
  Serious: Yes (Hospitalization)
  Sender: FDA-Public Use
  Company Number: JP-ROCHE-713288

PATIENT
  Sex: Male

DRUGS (17)
  1. BEVACIZUMAB [Suspect]
     Indication: RECTAL CANCER RECURRENT
     Route: 041
     Dates: start: 20100531, end: 20100614
  2. IRINOTECAN HCL [Suspect]
     Indication: RECTAL CANCER RECURRENT
     Route: 041
     Dates: start: 20100531, end: 20100614
  3. FLUOROURACIL [Suspect]
     Indication: RECTAL CANCER RECURRENT
     Route: 040
     Dates: start: 20100531, end: 20100616
  4. FLUOROURACIL [Suspect]
     Dosage: ROUTE; INTRAVENOUS DRIP
     Route: 040
     Dates: start: 20100531, end: 20100616
  5. LEUCOVORIN CALCIUM [Suspect]
     Indication: RECTAL CANCER RECURRENT
     Dosage: GENERIC NAME: LEVOFOLINATE CALCIUM.
     Route: 041
     Dates: start: 20100531, end: 20100614
  6. CANDESARTAN CILEXETIL [Suspect]
     Indication: HYPERTENSION
     Route: 048
     Dates: start: 20090826, end: 20100701
  7. FLAVINE ADENINE DINUCLEOTIDE [Suspect]
     Indication: PROPHYLAXIS
     Dosage: DOSE: 1 DFX3/1DAY(S)
     Route: 048
     Dates: start: 20091111, end: 20100701
  8. ETODOLAC [Suspect]
     Indication: PYREXIA
     Route: 048
     Dates: start: 20100628, end: 20100701
  9. SODIUM GUALENATE [Suspect]
     Indication: PROPHYLAXIS
     Dosage: ROUTE: OROPHARINGEAL. DRUG: AZUNOL GARGLE LIQUID(SODIUM GUALENATE HYDRATE).FORM: INCLUDE ASPECT.
     Route: 048
     Dates: start: 20091209, end: 20100701
  10. SODIUM GUALENATE [Suspect]
     Dosage: DOSE ADJUSTED
     Route: 048
     Dates: start: 20100705
  11. OMEPRAZOLE [Suspect]
     Indication: GASTROINTESTINAL MUCOSAL DISORDER
     Dosage: FORM: ENTERIC COATING DRUG.
     Route: 048
     Dates: start: 20100628, end: 20100701
  12. OMEPRAZOLE [Suspect]
     Route: 048
     Dates: start: 20100705
  13. MINOCYCLINE HCL [Suspect]
     Indication: ACNE
     Dosage: DRUG REPORTED AS MINOMYCIN(MINOCYCLINE HYDROCHLORIDE).
     Route: 048
     Dates: start: 20100628, end: 20100701
  14. NEUPOGEN [Suspect]
     Indication: NEUTROPHIL COUNT DECREASED
     Dosage: DRUG REPORTED AS GRAN(FILGRASTIM(GENETICAL RECOMBINATION)).
     Route: 058
     Dates: start: 20100628, end: 20100630
  15. LEVOFLOXACIN [Concomitant]
     Dosage: EYE DROPS. DOSE ADJUSTED.
     Route: 047
     Dates: start: 19930101
  16. PRANOPROFEN [Concomitant]
     Dosage: DRUG REPORTED AS PRORANON(PRANOPROFEN). EYE DROPS.
     Route: 047
     Dates: start: 19930101
  17. TIMOLOL MALEATE [Concomitant]
     Dosage: EYE DROPS. DOSE ADJUSTED.
     Route: 047
     Dates: start: 19930101

REACTIONS (7)
  - ACNE [None]
  - BACK PAIN [None]
  - FEBRILE NEUTROPENIA [None]
  - HAEMORRHAGE [None]
  - INTERSTITIAL LUNG DISEASE [None]
  - PLEURAL EFFUSION [None]
  - STOMATITIS [None]
